FAERS Safety Report 13867338 (Version 1)
Quarter: 2017Q3

REPORT INFORMATION
  Report Type: Report from Study
  Country: ES (occurrence: ES)
  Receive Date: 20170814
  Receipt Date: 20170814
  Transmission Date: 20171127
  Serious: Yes (Life-Threatening, Hospitalization, Other)
  Sender: FDA-Public Use
  Company Number: ES-BRISTOL-MYERS SQUIBB COMPANY-BMS-2017-071489

PATIENT
  Sex: Female

DRUGS (1)
  1. ABATACEPT [Suspect]
     Active Substance: ABATACEPT
     Indication: RHEUMATOID ARTHRITIS
     Dosage: 125 MG, QWK
     Route: 058
     Dates: start: 20170124, end: 20170310

REACTIONS (4)
  - Sepsis [Recovered/Resolved]
  - Bacterial diarrhoea [Unknown]
  - Septic shock [Unknown]
  - Influenza [Unknown]

NARRATIVE: CASE EVENT DATE: 20170131
